FAERS Safety Report 9839817 (Version 1)
Quarter: 2014Q1

REPORT INFORMATION
  Report Type: Spontaneous
  Country: IT (occurrence: IT)
  Receive Date: 20140124
  Receipt Date: 20140124
  Transmission Date: 20141002
  Serious: Yes (Hospitalization)
  Sender: FDA-Public Use
  Company Number: IT-BRISTOL-MYERS SQUIBB COMPANY-20034229

PATIENT
  Age: 79 Year
  Sex: Male

DRUGS (7)
  1. COUMADIN TABS 5 MG [Suspect]
     Indication: ATRIAL FIBRILLATION
     Dosage: 1DF- 1UNIT?LAST DOSE:10OCT13
     Route: 048
     Dates: start: 20130101
  2. PLAVIX [Suspect]
     Indication: THROMBOSIS PROPHYLAXIS
     Dosage: PLAVIX ^75 MG TABS^ DOSAGE-1UNIT
     Route: 048
  3. CARDIOASPIRIN [Suspect]
     Indication: THROMBOSIS PROPHYLAXIS
     Dosage: CARDIOASPIRIN 100 MG TABS? 1DF=1 UNIT
     Route: 048
  4. PEPTAZOL [Concomitant]
     Route: 048
  5. LEVEMIR [Concomitant]
     Dosage: LEVEMIR ^100 U/ML INJECTION SOLUTION
     Route: 058
  6. NOVORAPID [Concomitant]
     Dosage: NOVORAPID 100 U/ML INJECTION SOLUTION?1DF-8/U
     Route: 058
  7. FORZAAR [Concomitant]
     Dosage: FORZAAR ^100+25^ MG TABS
     Route: 048

REACTIONS (1)
  - Anaemia [Unknown]
